FAERS Safety Report 10232553 (Version 1)
Quarter: 2014Q2

REPORT INFORMATION
  Report Type: Spontaneous
  Country: US (occurrence: None)
  Receive Date: 20140611
  Receipt Date: 20140611
  Transmission Date: 20141212
  Serious: No
  Sender: FDA-Public Use
  Company Number: None

PATIENT
  Age: 54 Year
  Sex: Female
  Weight: 117.48 kg

DRUGS (1)
  1. GEODON [Suspect]
     Indication: BIPOLAR DISORDER
     Dosage: 1, TAKEN BY MOUTH
     Route: 048

REACTIONS (8)
  - Nausea [None]
  - Headache [None]
  - Vomiting [None]
  - Dyskinesia [None]
  - Chills [None]
  - Paraesthesia [None]
  - Orthostatic hypotension [None]
  - Dizziness postural [None]
